FAERS Safety Report 5501091-7 (Version None)
Quarter: 2007Q4

REPORT INFORMATION
  Report Type: 
  Country: None (occurrence: None)
  Receive Date: 20071026
  Receipt Date: 20071017
  Transmission Date: 20080405
  Serious: Yes (Hospitalization, Other)
  Sender: FDA-Public Use
  Company Number: 2007BI018733

PATIENT
  Age: 51 Year
  Sex: Male

DRUGS (4)
  1. ZEVALIN [Suspect]
     Indication: NON-HODGKIN'S LYMPHOMA
     Dosage: 4.1 MCI;1X;IV
     Route: 042
     Dates: start: 20070612, end: 20070612
  2. ZEVALIN [Suspect]
     Indication: NON-HODGKIN'S LYMPHOMA
     Dosage: 32.9 MCI;1X;IV
     Route: 042
     Dates: start: 20070619, end: 20070619
  3. VELCADE [Concomitant]
  4. RITUXIMAB [Concomitant]

REACTIONS (1)
  - HYDRONEPHROSIS [None]
